FAERS Safety Report 21056324 (Version 3)
Quarter: 2022Q3

REPORT INFORMATION
  Report Type: Report from Study
  Country: ES (occurrence: ES)
  Receive Date: 20220708
  Receipt Date: 20220817
  Transmission Date: 20221026
  Serious: Yes (Death)
  Sender: FDA-Public Use
  Company Number: ES-GILEAD-2022-0588415

PATIENT
  Sex: Female

DRUGS (1)
  1. SACITUZUMAB GOVITECAN [Suspect]
     Active Substance: SACITUZUMAB GOVITECAN
     Indication: Transitional cell carcinoma
     Dosage: C3 DAY 1 AND DAY 8
     Route: 042
     Dates: start: 20220616, end: 20220623

REACTIONS (1)
  - Hypoglycaemia [Fatal]

NARRATIVE: CASE EVENT DATE: 20220703
